FAERS Safety Report 4818648-9 (Version None)
Quarter: 2005Q4

REPORT INFORMATION
  Report Type: 
  Country: None (occurrence: None)
  Receive Date: 20051101
  Receipt Date: 20051020
  Transmission Date: 20060501
  Serious: Yes (Other)
  Sender: FDA-Public Use
  Company Number: 200514247BCC

PATIENT
  Sex: Female
  Weight: 86.1834 kg

DRUGS (1)
  1. ACETYLSALICYLIC ACID SRT [Suspect]
     Indication: PAIN
     Dosage: 325 MG, QD, ORAL
     Route: 048

REACTIONS (3)
  - ANGINA PECTORIS [None]
  - PANIC ATTACK [None]
  - URTICARIA [None]
